FAERS Safety Report 4697011-8 (Version None)
Quarter: 2005Q2

REPORT INFORMATION
  Report Type: 
  Country: None (occurrence: None)
  Receive Date: 20050620
  Receipt Date: 20050322
  Transmission Date: 20051028
  Serious: No
  Sender: FDA-Public Use
  Company Number: US-YAMANOUCHI-YPA20050154

PATIENT
  Age: 77 Year
  Sex: Female
  Weight: 89.8122 kg

DRUGS (4)
  1. VESICARE [Suspect]
     Indication: INCONTINENCE
     Dosage: 5 MG QD PO
     Route: 048
     Dates: start: 20050203
  2. ADVAIR DISKUS 100/50 [Concomitant]
  3. ALBUTEROL [Concomitant]
  4. SYNTHROID [Concomitant]

REACTIONS (3)
  - INSOMNIA [None]
  - PAIN [None]
  - PRURITUS [None]
